FAERS Safety Report 14269811 (Version 1)
Quarter: 2017Q4

REPORT INFORMATION
  Report Type: Spontaneous
  Country: US (occurrence: US)
  Receive Date: 20171211
  Receipt Date: 20171211
  Transmission Date: 20180321
  Serious: Yes (Hospitalization, Other)
  Sender: FDA-Public Use
  Company Number: US-OTSUKA-2017_016825

PATIENT
  Sex: Male

DRUGS (2)
  1. ABILIFY [Suspect]
     Active Substance: ARIPIPRAZOLE
     Indication: MAJOR DEPRESSION
     Dosage: UNK
     Route: 065
  2. ABILIFY [Suspect]
     Active Substance: ARIPIPRAZOLE
     Indication: BIPOLAR DISORDER
     Dosage: 5 MG, QD
     Route: 065
     Dates: start: 2006, end: 20150718

REACTIONS (7)
  - Obsessive-compulsive disorder [Unknown]
  - Hospitalisation [Unknown]
  - Substance dependence [Unknown]
  - Suicide attempt [Unknown]
  - Suicidal ideation [Unknown]
  - Gambling [Unknown]
  - Compulsive sexual behaviour [Unknown]
